FAERS Safety Report 14648319 (Version 1)
Quarter: 2018Q1

REPORT INFORMATION
  Report Type: Spontaneous
  Country: SA (occurrence: SA)
  Receive Date: 20180316
  Receipt Date: 20180316
  Transmission Date: 20180509
  Serious: Yes (Other)
  Sender: FDA-Public Use
  Company Number: SA-PFIZER INC-2018106678

PATIENT
  Age: 28 Year
  Sex: Female

DRUGS (2)
  1. DALACIN [Concomitant]
     Active Substance: CLINDAMYCIN
     Dosage: UNK
  2. VIBRAMYCIN [Suspect]
     Active Substance: DOXYCYCLINE
     Indication: ACNE
     Dosage: 100 MG, 1X/DAY, BEFORE MEAL

REACTIONS (4)
  - Eye haemorrhage [Unknown]
  - Malaise [Unknown]
  - Vomiting [Unknown]
  - Folliculitis [Unknown]
